FAERS Safety Report 6632409-X (Version None)
Quarter: 2010Q1

REPORT INFORMATION
  Report Type: 
  Country: None (occurrence: None)
  Receive Date: 20100312
  Receipt Date: 20090904
  Transmission Date: 20100710
  Serious: Yes (Hospitalization)
  Sender: FDA-Public Use
  Company Number: 171255

PATIENT
  Age: 51 Year
  Sex: Female
  Weight: 68 kg

DRUGS (5)
  1. AVONEX [Suspect]
     Indication: MULTIPLE SCLEROSIS
     Route: 030
     Dates: start: 19970901, end: 20030101
  2. AVONEX [Suspect]
     Route: 030
     Dates: start: 20030101, end: 20030101
  3. AVONEX [Suspect]
     Route: 030
     Dates: start: 20030101, end: 20060401
  4. PREMPHASE 14/14 [Concomitant]
     Indication: HORMONE REPLACEMENT THERAPY
     Dates: start: 20021201, end: 20030201
  5. ^FEM HEART^ [Concomitant]
     Indication: HORMONE REPLACEMENT THERAPY
     Dates: start: 20030201

REACTIONS (8)
  - ALOPECIA [None]
  - CHILLS [None]
  - DEHYDRATION [None]
  - DIZZINESS [None]
  - INFLUENZA LIKE ILLNESS [None]
  - MULTIPLE SCLEROSIS RELAPSE [None]
  - NAUSEA [None]
  - VERTIGO [None]
